FAERS Safety Report 9475445 (Version 2)
Quarter: 2013Q3

REPORT INFORMATION
  Report Type: Spontaneous
  Country: US (occurrence: US)
  Receive Date: 20130826
  Receipt Date: 20130827
  Transmission Date: 20140515
  Serious: No
  Sender: FDA-Public Use
  Company Number: US-009507513-1308USA008564

PATIENT
  Age: 46 Year
  Sex: Female

DRUGS (5)
  1. PEGINTRON [Suspect]
     Indication: HEPATITIS C
     Dosage: 80 MICROGRAM, QW
     Dates: start: 20130403
  2. REBETOL [Suspect]
     Indication: HEPATITIS C
     Dosage: UNKNOWN
     Route: 048
  3. PAXIL [Concomitant]
  4. XANAX [Concomitant]
  5. SEROQUEL [Concomitant]

REACTIONS (3)
  - Influenza like illness [Not Recovered/Not Resolved]
  - Chills [Not Recovered/Not Resolved]
  - Pain [Not Recovered/Not Resolved]
